FAERS Safety Report 9419724 (Version 2)
Quarter: 2013Q4

REPORT INFORMATION
  Report Type: Spontaneous
  Country: US (occurrence: None)
  Receive Date: 20130723
  Receipt Date: 20131104
  Transmission Date: 20140711
  Serious: Yes (Hospitalization)
  Sender: FDA-Public Use
  Company Number: B0907499A

PATIENT
  Age: 57 Year
  Sex: Female

DRUGS (4)
  1. BUPROPION HYDROCHLORIDE [Suspect]
     Indication: DEPRESSION
  2. CITALOPRAM [Suspect]
     Indication: DEPRESSION
  3. BUPRENORPHINE [Suspect]
     Indication: DRUG DEPENDENCE
  4. MIRTAZAPINE [Concomitant]

REACTIONS (6)
  - Cerebral vasoconstriction [None]
  - Convulsion [None]
  - Hyperhidrosis [None]
  - Pyrexia [None]
  - Tachycardia [None]
  - Labile blood pressure [None]
